FAERS Safety Report 23410791 (Version 2)
Quarter: 2024Q3

REPORT INFORMATION
  Report Type: Spontaneous
  Country: CA (occurrence: CA)
  Receive Date: 20240117
  Receipt Date: 20240822
  Transmission Date: 20241016
  Serious: Yes (Other)
  Sender: BAXTER
  Company Number: CA-BAXTER-2023BAX039352

PATIENT

DRUGS (3)
  1. TISSEEL (FACTOR XIII CONCENTRATE (HUMAN)\FIBRINOGEN HUMAN\THROMBIN HUM [Suspect]
     Active Substance: APROTININ\CALCIUM CHLORIDE\FIBRINOGEN HUMAN\FACTOR XIII CONCENTRATE (HUMAN)\THROMBIN
     Indication: Product used for unknown indication
     Dosage: 500UI (CONG), 10 ML AT AN UNSPECIFIED FREQUENCY, 500UI (CONG) AT 17:00 HOURS (DOSAGE FORM: SOLUTION
     Route: 065
     Dates: start: 20231124
  2. THROMBIN [Suspect]
     Active Substance: THROMBIN
     Indication: Tissue sealing
     Dosage: AT AN UNSPECIFIED DOSE AND FREQUENCY, VHSD HM 10ML NF 6PK AT 15:10 HOURS AND 16:04 HOURS
     Route: 065
     Dates: start: 20231124
  3. DEVICE\GELATIN [Suspect]
     Active Substance: DEVICE\GELATIN
     Indication: Tissue sealing
     Dosage: AT AN UNSPECIFIED DOSE AND FREQUENCY
     Route: 065

REACTIONS (4)
  - Shock [Recovered/Resolved]
  - Tachycardia [Recovered/Resolved]
  - Rash [Recovered/Resolved]
  - Hypotension [Recovered/Resolved]

NARRATIVE: CASE EVENT DATE: 20231124
